FAERS Safety Report 18398211 (Version 1)
Quarter: 2020Q4

REPORT INFORMATION
  Report Type: Spontaneous
  Country: NL (occurrence: NL)
  Receive Date: 20201019
  Receipt Date: 20201019
  Transmission Date: 20210114
  Serious: Yes (Hospitalization)
  Sender: FDA-Public Use
  Company Number: NL-TEVA-2020-NL-1838687

PATIENT
  Age: 73 Year
  Sex: Female
  Weight: 54.8 kg

DRUGS (6)
  1. METOCLOPRAMIDE TABLET 10MG / BRAND NAME NOT SPECIFIED [Concomitant]
     Active Substance: METOCLOPRAMIDE
     Dosage: 10 MG,THERAPY START DATE AND END DATE : ASKU
  2. PARACETAMOL TABLET  500MG / BRAND NAME NOT SPECIFIED [Concomitant]
     Dosage: 500 MG, THERAPY START DATE AND END DATE : ASKU
  3. PACLITAXEL INFUUS / BRAND NAME NOT SPECIFIED [Suspect]
     Active Substance: PACLITAXEL
     Indication: BREAST CANCER
     Dosage: 129 MG = 272 ML, UNIT DOSE : 129 MG
     Dates: start: 20200826, end: 20200827
  4. LISINOPRIL TABLET 10MG / BRAND NAME NOT SPECIFIED [Concomitant]
     Active Substance: LISINOPRIL
     Dosage: 10 MG,THERAPY START DATE AND END DATE : ASKU
  5. METOCLOPRAMIDE ZETPIL 10MG / BRAND NAME NOT SPECIFIED [Concomitant]
     Dosage: THERAPY START DATE AND END DATE : ASKU, 10 MG (MILLIGRAM)
  6. AMLODIPINE TABLET   5MG / BRAND NAME NOT SPECIFIED [Concomitant]
     Active Substance: AMLODIPINE BESYLATE
     Dosage: 5 MG , THERAPY START DATE AND END DATE : ASKU

REACTIONS (1)
  - Pneumonitis [Recovering/Resolving]

NARRATIVE: CASE EVENT DATE: 20200827
